FAERS Safety Report 7244938-9 (Version None)
Quarter: 2011Q1

REPORT INFORMATION
  Report Type: 
  Country: None (occurrence: None)
  Receive Date: 20110126
  Receipt Date: 20110119
  Transmission Date: 20110831
  Serious: Yes (Hospitalization, Other)
  Sender: FDA-Public Use
  Company Number: US-ELI_LILLY_AND_COMPANY-US201101004835

PATIENT
  Age: 40 Year
  Sex: Female

DRUGS (4)
  1. HUMULIN R [Suspect]
     Indication: DIABETES MELLITUS
     Dosage: 20 U, AS NEEDED
     Dates: start: 20070101
  2. LANTUS [Concomitant]
     Dosage: UNK, 2/D
  3. ACTOS [Suspect]
  4. HUMULIN R [Suspect]
     Dosage: UNK, UNK
     Dates: end: 20070101

REACTIONS (21)
  - PULMONARY OEDEMA [None]
  - ASTHMA [None]
  - FATIGUE [None]
  - HYPOTENSION [None]
  - SINUS TACHYCARDIA [None]
  - INTRACARDIAC THROMBUS [None]
  - OEDEMA [None]
  - DIABETES MELLITUS INADEQUATE CONTROL [None]
  - CATARACT [None]
  - MIGRAINE [None]
  - DIABETIC NEUROPATHY [None]
  - VISION BLURRED [None]
  - DIPLOPIA [None]
  - CHEST PAIN [None]
  - BLOOD GLUCOSE INCREASED [None]
  - VEIN DISORDER [None]
  - CONVULSION [None]
  - SLEEP APNOEA SYNDROME [None]
  - DYSPNOEA [None]
  - INTERCEPTED DRUG DISPENSING ERROR [None]
  - OEDEMA PERIPHERAL [None]
